FAERS Safety Report 4318127-1 (Version None)
Quarter: 2004Q1

REPORT INFORMATION
  Report Type: 
  Country: None (occurrence: None)
  Receive Date: 20040317
  Receipt Date: 20030606
  Transmission Date: 20041129
  Serious: Yes (Death)
  Sender: FDA-Public Use
  Company Number: US-GLAXOSMITHKLINE-A0411363A

PATIENT
  Age: 47 Year
  Sex: Male
  Weight: 101.8 kg

DRUGS (6)
  1. PARNATE [Suspect]
     Indication: BIPOLAR DISORDER
     Dosage: 10MG THREE TIMES PER DAY
     Route: 048
  2. SEROQUEL [Suspect]
     Indication: BIPOLAR DISORDER
     Dosage: 300MG TWICE PER DAY
     Dates: start: 20000101
  3. CLOZAPINE [Concomitant]
  4. EFFEXOR [Concomitant]
  5. ZYPREXA [Concomitant]
     Dosage: 10MG AT NIGHT
  6. RISPERDAL [Concomitant]

REACTIONS (47)
  - ABDOMINAL PAIN [None]
  - ANGER [None]
  - ANURIA [None]
  - ARRHYTHMIA [None]
  - ASTHENIA [None]
  - BILIRUBIN CONJUGATED INCREASED [None]
  - BLOOD CALCIUM INCREASED [None]
  - BLOOD CHLORIDE DECREASED [None]
  - BLOOD CREATINE PHOSPHOKINASE INCREASED [None]
  - BLOOD PHOSPHORUS INCREASED [None]
  - BLOOD POTASSIUM INCREASED [None]
  - BLOOD SODIUM DECREASED [None]
  - BLOOD TEST ABNORMAL [None]
  - CARDIAC ARREST [None]
  - CARDIOMEGALY [None]
  - CHEST PAIN [None]
  - CONFUSIONAL STATE [None]
  - COUGH [None]
  - CYANOSIS [None]
  - DECREASED APPETITE [None]
  - DISTURBANCE IN ATTENTION [None]
  - DRUG INEFFECTIVE [None]
  - DYSPNOEA [None]
  - ELECTROCARDIOGRAM QRS COMPLEX PROLONGED [None]
  - FATIGUE [None]
  - FEELING ABNORMAL [None]
  - FLAT AFFECT [None]
  - HEADACHE [None]
  - HEART RATE INCREASED [None]
  - HYPERHIDROSIS [None]
  - HYPERTHERMIA MALIGNANT [None]
  - HYPERVENTILATION [None]
  - HYPOGLYCAEMIA [None]
  - HYPOTENSION [None]
  - IRRITABILITY [None]
  - LEUKOCYTOSIS [None]
  - MEMORY IMPAIRMENT [None]
  - MICTURITION FREQUENCY DECREASED [None]
  - NECK PAIN [None]
  - NEUROLEPTIC MALIGNANT SYNDROME [None]
  - PULMONARY HYPERTENSION [None]
  - PULSE ABSENT [None]
  - PYREXIA [None]
  - RESTLESSNESS [None]
  - TACHYCARDIA [None]
  - TREMOR [None]
  - VENTRICULAR HYPERTROPHY [None]
